FAERS Safety Report 7478229-8 (Version None)
Quarter: 2011Q2

REPORT INFORMATION
  Report Type: 
  Country: None (occurrence: None)
  Receive Date: 20110513
  Receipt Date: 20110509
  Transmission Date: 20111010
  Serious: Yes (Life-Threatening, Other)
  Sender: FDA-Public Use
  Company Number: PHHY2011US28045

PATIENT
  Sex: Female
  Weight: 74.376 kg

DRUGS (13)
  1. ZANTAC [Concomitant]
  2. MACRODANTIN [Concomitant]
  3. CELEBREX [Concomitant]
  4. METOPROLOL SUCCINATE [Concomitant]
  5. SPIRIVA [Concomitant]
  6. TEOSAL [Concomitant]
  7. FUROSEMIDE [Concomitant]
  8. PRAVASTATIN [Concomitant]
  9. RECLAST [Suspect]
     Indication: OSTEOPOROSIS
     Dosage: 5 MG
     Route: 042
     Dates: start: 20101116, end: 20101116
  10. MORPHINE [Concomitant]
  11. NITROGLYCERIN [Concomitant]
  12. SERTRALINE HYDROCHLORIDE [Concomitant]
  13. VITAMIN D [Concomitant]

REACTIONS (7)
  - MALAISE [None]
  - PAIN [None]
  - ARTHRALGIA [None]
  - FEELING ABNORMAL [None]
  - RENAL PAIN [None]
  - BEDRIDDEN [None]
  - PAIN IN EXTREMITY [None]
